FAERS Safety Report 15548646 (Version 2)
Quarter: 2020Q4

REPORT INFORMATION
  Report Type: Spontaneous
  Country: ZA (occurrence: ZA)
  Receive Date: 20181025
  Receipt Date: 20201118
  Transmission Date: 20210113
  Serious: Yes (Other)
  Sender: FDA-Public Use
  Company Number: ZA-AMGEN-ZAFSP2018148819

PATIENT
  Age: 60 Year
  Sex: Female
  Weight: 70 kg

DRUGS (2)
  1. METHOTREXATE. [Suspect]
     Active Substance: METHOTREXATE
     Indication: PRODUCT USED FOR UNKNOWN INDICATION
     Dosage: 7.5 MILLIGRAM, QWK
     Route: 065
     Dates: start: 20060101
  2. ENBREL [Suspect]
     Active Substance: ETANERCEPT
     Indication: PRODUCT USED FOR UNKNOWN INDICATION
     Dosage: 25 MILLIGRAM, QWK
     Route: 058
     Dates: start: 20061207

REACTIONS (9)
  - Animal bite [Recovered/Resolved]
  - Arthritis bacterial [Recovered/Resolved]
  - Anti-cyclic citrullinated peptide antibody positive [Unknown]
  - Tender joint count increased [Recovered/Resolved]
  - Off label use [Unknown]
  - Rheumatoid factor increased [Unknown]
  - White blood cell count increased [Recovered/Resolved]
  - Sepsis [Recovered/Resolved]
  - Rheumatoid factor positive [Unknown]

NARRATIVE: CASE EVENT DATE: 20061207
